FAERS Safety Report 9058352 (Version 2)
Quarter: 2013Q1

REPORT INFORMATION
  Report Type: Spontaneous
  Country: US (occurrence: US)
  Receive Date: 20130211
  Receipt Date: 20130313
  Transmission Date: 20140127
  Serious: Yes (Hospitalization)
  Sender: FDA-Public Use
  Company Number: US-BAYER-2013-016406

PATIENT
  Age: 44 Year
  Sex: Female

DRUGS (6)
  1. YAZ [Suspect]
     Indication: PREMENSTRUAL SYNDROME
     Dosage: UNK
     Dates: start: 20060223, end: 20070102
  2. OSTEO BI-FLEX [Concomitant]
     Indication: ARTHROPATHY
     Dosage: UNK
     Dates: start: 2007
  3. KETOPROFEN [Concomitant]
     Indication: ARTHROPATHY
     Dosage: UNK
     Dates: start: 2007
  4. LASIX [FUROSEMIDE] [Concomitant]
     Indication: JOINT SWELLING
     Dosage: UNK
     Dates: start: 2007
  5. K-DUR [Concomitant]
     Dosage: UNK
     Dates: start: 2007
  6. LORCET PLUS [Concomitant]
     Indication: ARTHRALGIA
     Dosage: UNK
     Dates: start: 2007

REACTIONS (9)
  - Deep vein thrombosis [None]
  - Abasia [None]
  - Impaired driving ability [None]
  - Injury [None]
  - Pain [None]
  - General physical health deterioration [None]
  - Emotional distress [None]
  - Anxiety [None]
  - Pain [None]
